FAERS Safety Report 5413508-7 (Version None)
Quarter: 2007Q3

REPORT INFORMATION
  Report Type: 
  Country: None (occurrence: None)
  Receive Date: 20070810
  Receipt Date: 20070804
  Transmission Date: 20080115
  Serious: Yes (Hospitalization)
  Sender: FDA-Public Use
  Company Number: US020936

PATIENT
  Sex: Female

DRUGS (2)
  1. PROVIGIL [Suspect]
     Dosage: ORAL
     Route: 048
     Dates: start: 20070701, end: 20070701
  2. ANTIDEPRESSANTS [Concomitant]

REACTIONS (2)
  - AMNESIA [None]
  - DISORIENTATION [None]
